FAERS Safety Report 12094585 (Version 1)
Quarter: 2016Q1

REPORT INFORMATION
  Report Type: Report from Study
  Country: US (occurrence: US)
  Receive Date: 20160219
  Receipt Date: 20160219
  Transmission Date: 20160526
  Serious: Yes (Hospitalization, Other)
  Sender: FDA-Public Use
  Company Number: US-ABBVIE-16P-163-1560453-00

PATIENT
  Age: 35 Year
  Sex: Female

DRUGS (5)
  1. HUMIRA [Suspect]
     Active Substance: ADALIMUMAB
     Dosage: DAY 1
     Route: 058
     Dates: start: 20160128, end: 20160128
  2. HUMIRA [Suspect]
     Active Substance: ADALIMUMAB
     Dosage: DAY 15
     Route: 058
     Dates: start: 20160211, end: 20160211
  3. HUMIRA [Suspect]
     Active Substance: ADALIMUMAB
     Indication: CROHN^S DISEASE
     Route: 058
  4. PREDNISONE. [Suspect]
     Active Substance: PREDNISONE
     Indication: PRODUCT USED FOR UNKNOWN INDICATION
     Route: 065
  5. PREDNISONE. [Suspect]
     Active Substance: PREDNISONE
     Route: 048
     Dates: start: 2016

REACTIONS (9)
  - Anxiety [Recovered/Resolved]
  - Respiratory symptom [Not Recovered/Not Resolved]
  - Headache [Not Recovered/Not Resolved]
  - Intestinal obstruction [Unknown]
  - Fatigue [Unknown]
  - Anxiety [Recovered/Resolved]
  - Dysphonia [Unknown]
  - Crohn^s disease [Not Recovered/Not Resolved]
  - Oropharyngeal pain [Unknown]

NARRATIVE: CASE EVENT DATE: 20160128
